FAERS Safety Report 9052258 (Version 4)
Quarter: 2014Q1

REPORT INFORMATION
  Report Type: Report from Study
  Country: US (occurrence: US)
  Receive Date: 20130206
  Receipt Date: 20140322
  Transmission Date: 20141002
  Serious: Yes (Hospitalization, Other)
  Sender: FDA-Public Use
  Company Number: PHEH2013US003041

PATIENT
  Age: 76 Year
  Sex: Female
  Weight: 47.6 kg

DRUGS (12)
  1. GILENYA [Suspect]
     Indication: MULTIPLE SCLEROSIS
     Dosage: 0.5 MG, QD
     Route: 048
     Dates: start: 201106
  2. GILENYA [Suspect]
     Dosage: 0.5 MG, QD
     Route: 048
     Dates: start: 20130225
  3. BACLOFEN [Suspect]
     Dosage: 10 MG, BID
     Route: 048
     Dates: start: 200704
  4. AMPYRA [Suspect]
     Indication: MULTIPLE SCLEROSIS
     Dosage: 10 MG, BID
     Route: 048
     Dates: start: 201105, end: 201212
  5. AMPYRA [Suspect]
     Indication: GAIT DISTURBANCE
     Dosage: 10 MG, BID
     Route: 048
  6. CALCIUM [Concomitant]
     Dosage: 500 MG, QD
     Dates: start: 200001
  7. OSTEO BI-FLEX                      /01431201/ [Concomitant]
     Dates: start: 200201
  8. GABAPENTIN [Concomitant]
     Indication: PAIN
     Dosage: 200 MG, BID
     Route: 048
     Dates: start: 200611
  9. LASIX [Concomitant]
     Dosage: 20 MG, UNK
     Route: 048
  10. KEFLEX [Concomitant]
     Dosage: 250 MG, UNK
     Route: 048
  11. IBUPROFEN [Concomitant]
     Indication: PAIN
     Dosage: 200 MG, UNK
     Dates: start: 201001
  12. TYLENOL [Concomitant]
     Indication: PAIN
     Dates: start: 201201

REACTIONS (9)
  - Multiple fractures [Recovered/Resolved]
  - Fall [Recovered/Resolved]
  - Arthritis [Recovering/Resolving]
  - Scoliosis [Not Recovered/Not Resolved]
  - Balance disorder [Unknown]
  - Chondropathy [Unknown]
  - Arthralgia [Recovering/Resolving]
  - Somnolence [Recovered/Resolved]
  - Weight decreased [Recovered/Resolved]
